FAERS Safety Report 4686945-6 (Version None)
Quarter: 2005Q2

REPORT INFORMATION
  Report Type: 
  Country: None (occurrence: None)
  Receive Date: 20050609
  Receipt Date: 20050603
  Transmission Date: 20051028
  Serious: Yes (Hospitalization)
  Sender: FDA-Public Use
  Company Number: FR-MERCK-0506FRA00023

PATIENT
  Age: 70 Year
  Sex: Male
  Weight: 118 kg

DRUGS (5)
  1. HYZAAR [Suspect]
     Indication: HYPERTENSION
     Route: 048
     Dates: end: 20050504
  2. ACETAMINOPHEN [Concomitant]
     Route: 048
     Dates: end: 20050504
  3. PANTOPRAZOLE SODIUM [Concomitant]
     Route: 048
     Dates: end: 20050427
  4. ESOMEPRAZOLE [Concomitant]
     Route: 048
     Dates: start: 20050428, end: 20050504
  5. ACEBUTOLOL [Concomitant]
     Indication: HYPERTENSION
     Route: 048

REACTIONS (2)
  - RECTAL HAEMORRHAGE [None]
  - THROMBOCYTOPENIA [None]
